FAERS Safety Report 5093182-2 (Version None)
Quarter: 2006Q3

REPORT INFORMATION
  Report Type: 
  Country: None (occurrence: None)
  Receive Date: 20060828
  Receipt Date: 20060630
  Transmission Date: 20061208
  Serious: No
  Sender: FDA-Public Use
  Company Number: 254591

PATIENT

DRUGS (2)
  1. LEVEMIR FLEXPEN(INSULIN DETEMIR) SOLUTION FOR INJECTION, .0024MOL/L [Suspect]
     Indication: DIABETES MELLITUS
  2. NOVOLOG [Suspect]
     Indication: DIABETES MELLITUS

REACTIONS (1)
  - VISION BLURRED [None]
